FAERS Safety Report 18452319 (Version 1)
Quarter: 2020Q4

REPORT INFORMATION
  Report Type: Spontaneous
  Country: FR (occurrence: FR)
  Receive Date: 20201102
  Receipt Date: 20201102
  Transmission Date: 20210114
  Serious: Yes (Other)
  Sender: FDA-Public Use
  Company Number: FR-AXELLIA-003468

PATIENT
  Age: 22 Year
  Sex: Male
  Weight: 66 kg

DRUGS (6)
  1. MIDAZOLAM. [Concomitant]
     Active Substance: MIDAZOLAM
     Route: 041
  2. AZACTAM [Suspect]
     Active Substance: AZTREONAM
     Indication: ANTIBIOTIC PROPHYLAXIS
     Dosage: STRENGTH-1 G, POWDER AND SOLUTION FOR PARENTERAL USE
     Route: 041
     Dates: end: 20201009
  3. PROPOFOL. [Concomitant]
     Active Substance: PROPOFOL
     Route: 041
  4. DAPTOMYCIN. [Suspect]
     Active Substance: DAPTOMYCIN
     Indication: ANTIBIOTIC PROPHYLAXIS
     Route: 041
     Dates: end: 20201009
  5. PARACETAMOL KABI [Suspect]
     Active Substance: ACETAMINOPHEN
     Indication: PAIN
     Dosage: STRENGTH-10 MG / ML
     Route: 041
  6. BUPIVACAINE. [Concomitant]
     Active Substance: BUPIVACAINE
     Route: 037

REACTIONS (2)
  - Lip oedema [Recovered/Resolved]
  - Urticaria [Recovered/Resolved]

NARRATIVE: CASE EVENT DATE: 20201009
